FAERS Safety Report 7231642-6 (Version None)
Quarter: 2011Q1

REPORT INFORMATION
  Report Type: 
  Country: None (occurrence: None)
  Receive Date: 20110118
  Receipt Date: 20110111
  Transmission Date: 20110831
  Serious: No
  Sender: FDA-Public Use
  Company Number: US-PFIZER INC-2011007372

PATIENT
  Sex: Male
  Weight: 77 kg

DRUGS (1)
  1. XALATAN [Suspect]
     Indication: INTRAOCULAR PRESSURE INCREASED
     Dosage: ONE DROP EACH EYE AT BED TIME
     Route: 047

REACTIONS (1)
  - DRUG INEFFECTIVE [None]
